FAERS Safety Report 9009879 (Version 1)
Quarter: 2013Q1

REPORT INFORMATION
  Report Type: Spontaneous
  Country: US (occurrence: US)
  Receive Date: 20130110
  Receipt Date: 20130110
  Transmission Date: 20140127
  Serious: No
  Sender: FDA-Public Use
  Company Number: US-TEVA-379482USA

PATIENT
  Age: 76 Year
  Sex: Female
  Weight: 52.21 kg

DRUGS (1)
  1. QNASL [Suspect]
     Indication: DYSPNOEA
     Dosage: 2 SPRAYS

REACTIONS (1)
  - Incorrect route of drug administration [Recovered/Resolved]
